FAERS Safety Report 20651386 (Version 2)
Quarter: 2022Q2

REPORT INFORMATION
  Report Type: Report from Study
  Country: CA (occurrence: CA)
  Receive Date: 20220330
  Receipt Date: 20220404
  Transmission Date: 20220720
  Serious: Yes (Hospitalization, Other)
  Sender: FDA-Public Use
  Company Number: CA-ABBVIE-22K-028-4337217-00

PATIENT
  Sex: Male

DRUGS (1)
  1. HUMIRA [Suspect]
     Active Substance: ADALIMUMAB
     Indication: Crohn^s disease
     Route: 058
     Dates: start: 20211223

REACTIONS (5)
  - Intestinal mass [Unknown]
  - Tuberculosis gastrointestinal [Unknown]
  - Gastrointestinal inflammation [Unknown]
  - Abscess intestinal [Unknown]
  - Intestinal tuberculosis [Unknown]
